FAERS Safety Report 19508695 (Version 2)
Quarter: 2021Q3

REPORT INFORMATION
  Report Type: Spontaneous
  Country: IN (occurrence: IN)
  Receive Date: 20210708
  Receipt Date: 20210716
  Transmission Date: 20211014
  Serious: Yes (Hospitalization, Other)
  Sender: FDA-Public Use
  Company Number: IN-PFIZER INC-2021137045

PATIENT
  Age: 59 Year
  Sex: Female

DRUGS (3)
  1. LETROZOLE. [Concomitant]
     Active Substance: LETROZOLE
     Dosage: UNK
  2. PALBACE [Suspect]
     Active Substance: PALBOCICLIB
     Dosage: 125 MG, CYCLIC (ONCE A DAY 3 WEEKS ON AND ONE?WEEK OFF PROTOCOL AFTER LUNCH )
     Dates: start: 2021
  3. PALBACE [Suspect]
     Active Substance: PALBOCICLIB
     Indication: BREAST CANCER METASTATIC
     Dosage: 125 MG, 1X/DAY
     Route: 048
     Dates: start: 20200704

REACTIONS (6)
  - Neoplasm progression [Unknown]
  - Platelet count decreased [Unknown]
  - Tuberculosis [Unknown]
  - Pleural effusion [Unknown]
  - Dyspnoea [Unknown]
  - Atelectasis [Unknown]

NARRATIVE: CASE EVENT DATE: 2020
